FAERS Safety Report 9789411 (Version 1)
Quarter: 2013Q4

REPORT INFORMATION
  Report Type: Spontaneous
  Country: HU (occurrence: HU)
  Receive Date: 20131231
  Receipt Date: 20131231
  Transmission Date: 20140711
  Serious: Yes (Other)
  Sender: FDA-Public Use
  Company Number: HU-ACTAVIS-2013-23692

PATIENT
  Age: 79 Year
  Sex: Female

DRUGS (5)
  1. EPIRUBICIN (UNKNOWN) [Suspect]
     Indication: DIFFUSE LARGE B-CELL LYMPHOMA
     Dosage: UNK, 6 CYCLES
     Route: 065
     Dates: start: 20061212, end: 20070327
  2. CYCLOPHOSPHAMIDE (UNKNOWN) [Suspect]
     Indication: DIFFUSE LARGE B-CELL LYMPHOMA
     Dosage: UNK, 6 CYCLES
     Route: 065
     Dates: start: 20061212, end: 20070327
  3. VINCRISTINE (UNKNOWN) [Suspect]
     Indication: DIFFUSE LARGE B-CELL LYMPHOMA
     Dosage: UNK, 6 CYCLES
     Route: 065
     Dates: start: 20061212, end: 20070327
  4. METHYLPREDNISOLONE (UNKNOWN) [Suspect]
     Indication: DIFFUSE LARGE B-CELL LYMPHOMA
     Dosage: UNK, 6 CYCLES
     Route: 065
     Dates: start: 20061212, end: 20070327
  5. RITUXIMAB [Suspect]
     Indication: DIFFUSE LARGE B-CELL LYMPHOMA
     Dosage: UNK, 6 CYCLES
     Route: 065
     Dates: start: 20061212, end: 20070317

REACTIONS (2)
  - Anaemia [Unknown]
  - Nausea [Unknown]
